FAERS Safety Report 5938444-9 (Version None)
Quarter: 2008Q4

REPORT INFORMATION
  Report Type: 
  Country: None (occurrence: None)
  Receive Date: 20081103
  Receipt Date: 20081021
  Transmission Date: 20090506
  Serious: Yes (Hospitalization)
  Sender: FDA-Public Use
  Company Number: US-ROCHE-591139

PATIENT
  Sex: Female
  Weight: 83.9 kg

DRUGS (4)
  1. CAPECITABINE [Suspect]
     Indication: BREAST CANCER METASTATIC
     Dosage: DOSE: 2000 MG AM, 1500 MG PM
     Route: 048
     Dates: start: 20070720
  2. LEXAPRO [Concomitant]
  3. ZOFRAN [Concomitant]
  4. BREDON [Concomitant]

REACTIONS (1)
  - HEART VALVE INCOMPETENCE [None]
